FAERS Safety Report 18651487 (Version 8)
Quarter: 2025Q1

REPORT INFORMATION
  Report Type: Spontaneous
  Country: CA (occurrence: CA)
  Receive Date: 20201223
  Receipt Date: 20250212
  Transmission Date: 20250408
  Serious: Yes (Hospitalization, Other)
  Sender: AUROBINDO
  Company Number: CA-TILLOMEDPR-2020-EPL-001904

PATIENT
  Age: 52 Year
  Sex: Female

DRUGS (12)
  1. DULOXETINE [Suspect]
     Active Substance: DULOXETINE
     Indication: Sciatica
     Dosage: 60 MILLIGRAM, ONCE A DAY
     Route: 065
  2. DULOXETINE [Suspect]
     Active Substance: DULOXETINE
     Dosage: 30 MILLIGRAM, TWO TIMES A DAY
     Route: 065
  3. DULOXETINE [Suspect]
     Active Substance: DULOXETINE
     Indication: Sciatica
     Dosage: 60 MILLIGRAM, ONCE A DAY
     Route: 048
  4. XYLOMETAZOLINE [Suspect]
     Active Substance: XYLOMETAZOLINE
     Indication: Condition aggravated
     Route: 061
  5. XYLOMETAZOLINE [Suspect]
     Active Substance: XYLOMETAZOLINE
     Indication: Nasal congestion
     Route: 061
  6. XYLOMETAZOLINE [Suspect]
     Active Substance: XYLOMETAZOLINE
     Route: 045
  7. XYLOMETAZOLINE [Suspect]
     Active Substance: XYLOMETAZOLINE
     Indication: Nasal congestion
     Dosage: 1 DOSAGE FORM, ONCE A DAY
     Route: 045
  8. XYLOMETAZOLINE [Suspect]
     Active Substance: XYLOMETAZOLINE
     Dosage: 3 DOSAGE FORM, ONCE A DAY
     Route: 061
  9. ALBUTEROL [Suspect]
     Active Substance: ALBUTEROL
     Indication: Nasal congestion
     Route: 065
  10. BUDESONIDE\FORMOTEROL [Suspect]
     Active Substance: BUDESONIDE\FORMOTEROL
     Indication: Nasal congestion
     Route: 055
  11. MONTELUKAST [Concomitant]
     Active Substance: MONTELUKAST
     Indication: Nasal congestion
     Dosage: 10 MILLIGRAM, ONCE A DAY
     Route: 065
  12. MONTELUKAST [Concomitant]
     Active Substance: MONTELUKAST
     Indication: Asthma

REACTIONS (5)
  - Reversible cerebral vasoconstriction syndrome [Recovered/Resolved]
  - Thunderclap headache [Recovered/Resolved]
  - Rebound nasal congestion [Unknown]
  - Subarachnoid haemorrhage [Recovered/Resolved]
  - Off label use [Unknown]
